FAERS Safety Report 5402147-X (Version None)
Quarter: 2007Q3

REPORT INFORMATION
  Report Type: 
  Country: None (occurrence: None)
  Receive Date: 20070730
  Receipt Date: 20070719
  Transmission Date: 20080115
  Serious: Yes (Hospitalization)
  Sender: FDA-Public Use
  Company Number: VNL_00674_2007

PATIENT
  Sex: Male
  Weight: 68.9467 kg

DRUGS (13)
  1. APOKYN [Suspect]
     Indication: PARKINSON'S DISEASE
     Dosage: 0.2 ML PRN SUBCUTANEOUS
     Route: 058
     Dates: start: 20070706
  2. COREG [Suspect]
     Indication: DRUG USE FOR UNKNOWN INDICATION
     Dosage: 12.5 MG BID ORAL
  3. DIGOXIN [Concomitant]
  4. ZOCOR [Concomitant]
  5. COMTAN [Concomitant]
  6. SINEMET [Concomitant]
  7. REQUIP [Concomitant]
  8. PARCOPA 10/100 [Concomitant]
  9. NEXIUM [Concomitant]
  10. TIGAN [Concomitant]
  11. FISH OIL [Concomitant]
  12. GARLIC [Concomitant]
  13. MAGNESIUM OXIDE [Concomitant]

REACTIONS (9)
  - BLOOD PRESSURE DIASTOLIC DECREASED [None]
  - BLOOD PRESSURE SYSTOLIC DECREASED [None]
  - COLD SWEAT [None]
  - CONDITION AGGRAVATED [None]
  - DEHYDRATION [None]
  - DIZZINESS [None]
  - HYPERHIDROSIS [None]
  - IMMEDIATE POST-INJECTION REACTION [None]
  - LABILE BLOOD PRESSURE [None]
